FAERS Safety Report 25050597 (Version 1)
Quarter: 2025Q1

REPORT INFORMATION
  Report Type: Spontaneous
  Country: CN (occurrence: CN)
  Receive Date: 20250307
  Receipt Date: 20250307
  Transmission Date: 20250409
  Serious: Yes (Life-Threatening)
  Sender: NOVARTIS
  Company Number: CN-002147023-NVSC2025CN039090

PATIENT
  Age: 73 Year
  Sex: Male
  Weight: 60 kg

DRUGS (2)
  1. SACUBITRIL\VALSARTAN [Suspect]
     Active Substance: SACUBITRIL\VALSARTAN
     Indication: Cardiac failure
     Dosage: 25.000 MG, BID
     Route: 048
     Dates: start: 20250303, end: 20250306
  2. SPIRONOLACTONE [Suspect]
     Active Substance: SPIRONOLACTONE
     Indication: Cardiac failure
     Dosage: 20.000 MG, BID
     Route: 048
     Dates: start: 20250303, end: 20250306

REACTIONS (1)
  - Blood potassium increased [Recovering/Resolving]

NARRATIVE: CASE EVENT DATE: 20250306
